FAERS Safety Report 6024248-8 (Version None)
Quarter: 2008Q4

REPORT INFORMATION
  Report Type: 
  Country: None (occurrence: None)
  Receive Date: 20081231
  Receipt Date: 20081223
  Transmission Date: 20090506
  Serious: Yes (Death, Other)
  Sender: FDA-Public Use
  Company Number: GB-RANBAXY-2008RR-20199

PATIENT
  Age: 56 Year
  Sex: Female

DRUGS (9)
  1. AMOXICILLIN [Suspect]
  2. TYGACIL [Suspect]
     Indication: BACTERAEMIA
     Dosage: UNK
  3. TYGACIL [Suspect]
     Indication: ENDOCARDITIS
  4. TYGACIL [Suspect]
     Indication: ENTEROCOCCAL INFECTION
  5. TYGACIL [Suspect]
     Indication: INTERVERTEBRAL DISCITIS
  6. VANCOMYCIN HYDROCHLORIDE [Suspect]
     Indication: BACTERAEMIA
  7. VANCOMYCIN HYDROCHLORIDE [Suspect]
     Indication: ENDOCARDITIS
  8. VANCOMYCIN HYDROCHLORIDE [Suspect]
     Indication: ENTEROCOCCAL INFECTION
  9. LINEZOLID [Concomitant]

REACTIONS (5)
  - BACTERAEMIA [None]
  - CARDIAC FAILURE CONGESTIVE [None]
  - CLOSTRIDIUM DIFFICILE COLITIS [None]
  - DRUG INEFFECTIVE [None]
  - RENAL FAILURE ACUTE [None]
